FAERS Safety Report 4364191-3 (Version None)
Quarter: 2004Q2

REPORT INFORMATION
  Report Type: 
  Country: None (occurrence: None)
  Receive Date: 20040517
  Receipt Date: 20040305
  Transmission Date: 20050107
  Serious: No
  Sender: FDA-Public Use
  Company Number: S04-USA-01105-01

PATIENT
  Age: 70 Year
  Sex: Male

DRUGS (8)
  1. NAMENDA [Suspect]
     Indication: DEMENTIA ALZHEIMER'S TYPE
     Dosage: 15 MG QD PO
     Route: 048
     Dates: start: 20040227
  2. NAMENDA [Suspect]
     Indication: DEMENTIA ALZHEIMER'S TYPE
     Dosage: 5 MG QD PO
     Route: 048
     Dates: start: 20040213, end: 20040219
  3. NAMENDA [Suspect]
     Indication: DEMENTIA ALZHEIMER'S TYPE
     Dosage: 10 MG QD PO
     Route: 048
     Dates: start: 20040220, end: 20040226
  4. EXELON [Concomitant]
  5. MIRTAZAPINE [Concomitant]
  6. CLONAZEPAM [Concomitant]
  7. RISPERIDONE [Concomitant]
  8. CITALOPRAM [Concomitant]

REACTIONS (2)
  - HALLUCINATION, VISUAL [None]
  - URINARY INCONTINENCE [None]
